FAERS Safety Report 25444240 (Version 1)
Quarter: 2025Q2

REPORT INFORMATION
  Report Type: Spontaneous
  Country: US (occurrence: US)
  Receive Date: 20250617
  Receipt Date: 20250617
  Transmission Date: 20250716
  Serious: No
  Sender: UCB
  Company Number: US-UCBSA-2025023398

PATIENT
  Sex: Female

DRUGS (1)
  1. BIMZELX [Suspect]
     Active Substance: BIMEKIZUMAB-BKZX
     Indication: Product used for unknown indication
     Dates: end: 2025

REACTIONS (3)
  - Stomatitis [Recovered/Resolved]
  - Migraine [Recovered/Resolved]
  - Abdominal discomfort [Recovered/Resolved]
